FAERS Safety Report 12488767 (Version 3)
Quarter: 2016Q3

REPORT INFORMATION
  Report Type: Spontaneous
  Country: JP (occurrence: JP)
  Receive Date: 20160622
  Receipt Date: 20160812
  Transmission Date: 20161109
  Serious: Yes (Hospitalization)
  Sender: FDA-Public Use
  Company Number: JP-PFIZER INC-2016304102

PATIENT
  Age: 67 Year
  Sex: Male

DRUGS (4)
  1. VANCOMYCIN [Suspect]
     Active Substance: VANCOMYCIN
     Dosage: 500 MG, DAILY
     Route: 041
     Dates: start: 20160502, end: 20160503
  2. TEICOPLANIN [Suspect]
     Active Substance: TEICOPLANIN
     Dosage: 200 MG, DAILY
     Route: 041
     Dates: start: 20160408, end: 20160420
  3. ANAEMETRO 500MG [Suspect]
     Active Substance: METRONIDAZOLE
     Dosage: 2000 MG, DAILY
     Route: 041
     Dates: start: 20160415, end: 20160419
  4. AMBISOME [Suspect]
     Active Substance: AMPHOTERICIN B
     Dosage: 150 MG, DAILY
     Route: 041
     Dates: start: 20160401, end: 20160419

REACTIONS (1)
  - Drug-induced liver injury [Unknown]

NARRATIVE: CASE EVENT DATE: 20160419
